FAERS Safety Report 21504547 (Version 1)
Quarter: 2022Q4

REPORT INFORMATION
  Report Type: Spontaneous
  Country: CA (occurrence: CA)
  Receive Date: 20221025
  Receipt Date: 20221025
  Transmission Date: 20230112
  Serious: Yes (Other)
  Sender: FDA-Public Use
  Company Number: CA-PFIZER INC-PV202200079616

PATIENT
  Age: 56 Year
  Sex: Male

DRUGS (2)
  1. METHYLPREDNISOLONE [Suspect]
     Active Substance: METHYLPREDNISOLONE
     Indication: Eosinophilic granulomatosis with polyangiitis
     Dosage: 3 DOSES
     Route: 042
  2. PREDNISONE [Suspect]
     Active Substance: PREDNISONE
     Indication: Eosinophilic granulomatosis with polyangiitis
     Dosage: UNK
     Route: 048

REACTIONS (3)
  - Depressed level of consciousness [Unknown]
  - Headache [Unknown]
  - Chest pain [Unknown]
